FAERS Safety Report 6091567-9 (Version None)
Quarter: 2009Q1

REPORT INFORMATION
  Report Type: 
  Country: None (occurrence: None)
  Receive Date: 20090225
  Receipt Date: 20080201
  Transmission Date: 20090719
  Serious: No
  Sender: FDA-Public Use
  Company Number: A0703394A

PATIENT
  Sex: Female

DRUGS (1)
  1. VALTREX [Suspect]
     Dosage: 1TAB UNKNOWN
     Route: 048

REACTIONS (3)
  - FEELING ABNORMAL [None]
  - HEADACHE [None]
  - MIGRAINE [None]
